FAERS Safety Report 17712144 (Version 1)
Quarter: 2020Q2

REPORT INFORMATION
  Report Type: Spontaneous
  Country: US (occurrence: US)
  Receive Date: 20200427
  Receipt Date: 20200427
  Transmission Date: 20200714
  Serious: No
  Sender: FDA-Public Use
  Company Number: US-ROCHE-2545906

PATIENT
  Age: 35 Year
  Sex: Female
  Weight: 56.75 kg

DRUGS (1)
  1. XOFLUZA [Suspect]
     Active Substance: BALOXAVIR MARBOXIL
     Indication: INFLUENZA
     Dosage: TWO 40MG AT ONCE ;ONGOING: NO
     Route: 048
     Dates: start: 20200203, end: 20200203

REACTIONS (2)
  - Breast feeding [Recovered/Resolved]
  - No adverse event [Unknown]

NARRATIVE: CASE EVENT DATE: 20200203
